FAERS Safety Report 8462507-X (Version None)
Quarter: 2012Q2

REPORT INFORMATION
  Report Type: 
  Country: None (occurrence: None)
  Receive Date: 20120625
  Receipt Date: 20120621
  Transmission Date: 20120825
  Serious: Yes (Other)
  Sender: FDA-Public Use
  Company Number: PHEH2012US012475

PATIENT
  Sex: Female
  Weight: 71.655 kg

DRUGS (1)
  1. GILENYA [Suspect]
     Indication: MULTIPLE SCLEROSIS
     Dosage: 0.5 MG, QD
     Route: 048
     Dates: start: 20110909

REACTIONS (3)
  - OROPHARYNGEAL PAIN [None]
  - BACK PAIN [None]
  - INTERVERTEBRAL DISC PROTRUSION [None]
